FAERS Safety Report 4973793-2 (Version None)
Quarter: 2006Q2

REPORT INFORMATION
  Report Type: 
  Country: None (occurrence: None)
  Receive Date: 20060414
  Receipt Date: 20060322
  Transmission Date: 20061013
  Serious: Yes (Death)
  Sender: FDA-Public Use
  Company Number: US-MERCK-0603USA03565

PATIENT
  Age: 94 Year
  Sex: Female
  Weight: 44 kg

DRUGS (20)
  1. VIOXX [Suspect]
     Indication: PAIN MANAGEMENT
     Route: 048
     Dates: start: 20040203, end: 20040425
  2. ACETAMINOPHEN [Concomitant]
     Route: 048
  3. WARFARIN SODIUM [Concomitant]
     Route: 048
  4. KLOR-CON [Concomitant]
     Route: 048
  5. TRAZODONE HYDROCHLORIDE [Concomitant]
     Route: 048
  6. PAROXETINE [Concomitant]
     Route: 048
  7. VERAPAMIL [Concomitant]
     Route: 048
  8. HYDROCHLOROTHIAZIDE [Concomitant]
     Route: 065
  9. OCUVITE LUTEIN [Concomitant]
     Route: 065
  10. RANITIDINE [Concomitant]
     Route: 048
  11. DIGITEK [Concomitant]
     Route: 048
  12. LOPERAMIDE HYDROCHLORIDE [Concomitant]
     Route: 048
  13. IMODIUM [Concomitant]
     Route: 048
  14. PAXIL [Concomitant]
     Route: 048
  15. TRILEPTAL [Concomitant]
     Route: 048
  16. LEVAQUIN [Concomitant]
     Route: 048
  17. METAMUCIL [Concomitant]
     Route: 048
  18. COUMADIN [Concomitant]
     Route: 048
  19. SEROQUEL [Concomitant]
     Route: 048
  20. ALBUTEROL [Concomitant]
     Route: 065

REACTIONS (3)
  - BODY TEMPERATURE INCREASED [None]
  - COUGH [None]
  - ISCHAEMIC STROKE [None]
